FAERS Safety Report 9450110 (Version 2)
Quarter: 2013Q3

REPORT INFORMATION
  Report Type: Spontaneous
  Country: US (occurrence: US)
  Receive Date: 20130809
  Receipt Date: 20130915
  Transmission Date: 20140515
  Serious: Yes (Hospitalization)
  Sender: FDA-Public Use
  Company Number: US-PFIZER INC-2013227535

PATIENT
  Age: 52 Year
  Sex: Male

DRUGS (1)
  1. SUTENT [Suspect]
     Indication: GASTROINTESTINAL STROMAL TUMOUR
     Dosage: 50 MG ONCE DAILY 4/6 WEEKS
     Route: 048
     Dates: start: 201103

REACTIONS (2)
  - Gastrointestinal disorder [Unknown]
  - Diverticulitis [Recovered/Resolved]
